FAERS Safety Report 5187189-4 (Version None)
Quarter: 2006Q4

REPORT INFORMATION
  Report Type: 
  Country: None (occurrence: None)
  Receive Date: 20061211
  Receipt Date: 20061129
  Transmission Date: 20070319
  Serious: Yes (Death)
  Sender: FDA-Public Use
  Company Number: HQWYE614407OCT04

PATIENT
  Age: 11 Year
  Sex: Male

DRUGS (10)
  1. EFFEXOR XR [Suspect]
     Indication: ANXIETY DISORDER
     Dates: start: 20021008
  2. EFFEXOR XR [Suspect]
     Indication: DEPRESSION
     Dates: start: 20021008
  3. ZOLOFT [Suspect]
     Indication: ANXIETY DISORDER
     Dosage: SEE IMAGE
     Dates: start: 20020909, end: 20020916
  4. ZOLOFT [Suspect]
     Indication: DEPRESSION
     Dosage: SEE IMAGE
     Dates: start: 20020909, end: 20020916
  5. ZOLOFT [Suspect]
     Indication: ANXIETY DISORDER
     Dosage: SEE IMAGE
     Dates: start: 20020917, end: 20021002
  6. ZOLOFT [Suspect]
     Indication: DEPRESSION
     Dosage: SEE IMAGE
     Dates: start: 20020917, end: 20021002
  7. ZOLOFT [Suspect]
     Indication: ANXIETY DISORDER
     Dosage: SEE IMAGE
     Dates: start: 20021008
  8. ZOLOFT [Suspect]
     Indication: DEPRESSION
     Dosage: SEE IMAGE
     Dates: start: 20021008
  9. RISPERDAL [Concomitant]
  10. ZANTAC [Concomitant]

REACTIONS (14)
  - AGITATION [None]
  - ANXIETY [None]
  - COMPLETED SUICIDE [None]
  - CONDITION AGGRAVATED [None]
  - CONVERSION DISORDER [None]
  - DELIRIUM [None]
  - HOSTILITY [None]
  - IMPULSE-CONTROL DISORDER [None]
  - INJURY ASPHYXIATION [None]
  - IRRITABILITY [None]
  - MANIA [None]
  - RESTLESSNESS [None]
  - SCHOOL REFUSAL [None]
  - SUICIDAL IDEATION [None]
